FAERS Safety Report 4469096-5 (Version None)
Quarter: 2004Q4

REPORT INFORMATION
  Report Type: 
  Country: None (occurrence: None)
  Receive Date: 20041008
  Receipt Date: 20040727
  Transmission Date: 20050328
  Serious: Yes (Hospitalization)
  Sender: FDA-Public Use
  Company Number: US-BRISTOL-MYERS SQUIBB COMPANY-12651725

PATIENT
  Age: 56 Year
  Sex: Female

DRUGS (4)
  1. PRAVACHOL [Suspect]
     Indication: HYPERCHOLESTEROLAEMIA
     Route: 048
     Dates: start: 20030801
  2. ALLEGRA-D [Suspect]
     Indication: MULTIPLE ALLERGIES
     Route: 048
  3. TOPROL-XL [Concomitant]
  4. METFORMIN HCL [Concomitant]
     Indication: BLOOD GLUCOSE INCREASED

REACTIONS (1)
  - CARDIAC DISORDER [None]
